FAERS Safety Report 11972307 (Version 2)
Quarter: 2016Q1

REPORT INFORMATION
  Report Type: Report from Study
  Country: CA (occurrence: CA)
  Receive Date: 20160128
  Receipt Date: 20160201
  Transmission Date: 20160526
  Serious: Yes (Hospitalization)
  Sender: FDA-Public Use
  Company Number: CA-JNJFOC-20160121040

PATIENT
  Age: 12 Year
  Sex: Male
  Weight: 41.5 kg

DRUGS (4)
  1. REMICADE [Suspect]
     Active Substance: INFLIXIMAB
     Indication: INFLAMMATORY BOWEL DISEASE
     Dosage: INDUCTION DOSE AT WEEK 1
     Route: 042
     Dates: start: 20151027
  2. 5-ASA [Concomitant]
     Active Substance: MESALAMINE
     Route: 048
  3. REMICADE [Suspect]
     Active Substance: INFLIXIMAB
     Indication: INFLAMMATORY BOWEL DISEASE
     Dosage: INDUCTION DOSE AT WEEK 2
     Route: 042
     Dates: start: 20151124
  4. REMICADE [Suspect]
     Active Substance: INFLIXIMAB
     Indication: INFLAMMATORY BOWEL DISEASE
     Dosage: INDUCTION DOSE AT WEEK 0
     Route: 042
     Dates: start: 20151020

REACTIONS (1)
  - Colitis ulcerative [Recovered/Resolved]

NARRATIVE: CASE EVENT DATE: 20151209
